FAERS Safety Report 8220971-5 (Version None)
Quarter: 2012Q1

REPORT INFORMATION
  Report Type: 
  Country: None (occurrence: None)
  Receive Date: 20120320
  Receipt Date: 20120312
  Transmission Date: 20120608
  Serious: Yes (Hospitalization)
  Sender: FDA-Public Use
  Company Number: US-UCBSA-052358

PATIENT
  Age: 82 Year
  Sex: Male
  Weight: 84.6 kg

DRUGS (21)
  1. ASCORBIC ACID [Concomitant]
     Dates: start: 19850101, end: 20120227
  2. ZOLOFT [Concomitant]
     Indication: DEPRESSION
     Dates: start: 20060101
  3. METHOTREXATE [Concomitant]
     Indication: RHEUMATOID ARTHRITIS
     Dates: start: 20100501
  4. ALBUTEROL [Concomitant]
     Dosage: DOSE PER INTAKE: 2 PUFFS
     Dates: start: 20110101, end: 20120227
  5. CIMZIA [Suspect]
     Dosage: NO OF DOSES RECEIVED: 3
     Route: 058
     Dates: start: 20110721, end: 20110814
  6. ASCORBIC ACID [Concomitant]
     Indication: VITAMIN SUPPLEMENTATION
     Dates: start: 20120302
  7. MULTI-VITAMINS [Concomitant]
     Dosage: DOSE PER INTAKE: 1 TAB
     Dates: start: 20000101, end: 20120227
  8. IPRATROPIUM BROMIDE [Concomitant]
     Dosage: DOSE PER INTAKE: 1 PUFF
     Dates: start: 20110101, end: 20120227
  9. CIMZIA [Suspect]
     Indication: RHEUMATOID ARTHRITIS
     Dosage: NO OF DOSES: 13,
     Route: 058
     Dates: start: 20110901, end: 20120228
  10. FOLIC ACID [Concomitant]
     Indication: VITAMIN SUPPLEMENTATION
     Dates: start: 20040101
  11. ASCORBIC ACID [Concomitant]
     Dates: start: 20120228, end: 20120301
  12. SPIRIVA [Concomitant]
     Indication: EMPHYSEMA
     Dates: start: 20120302
  13. NAPROXEN (ALEVE) [Concomitant]
     Indication: RHEUMATOID ARTHRITIS
     Dates: start: 20120302
  14. LISINOPRIL AND HYDROCHLOROTHIAZIDE [Concomitant]
     Indication: HYPERTENSION
     Dosage: DOSE PER INTAKE: 1 TAB
     Dates: start: 20080101
  15. MULTI-VITAMINS [Concomitant]
     Indication: VITAMIN SUPPLEMENTATION
     Dosage: DOSE PER INTAKE: 1 TAB
     Dates: start: 20120302
  16. IPRATROPIUM BROMIDE [Concomitant]
     Indication: EMPHYSEMA
     Dosage: DOSE PER INTAKE: 1 PUFF
     Dates: start: 20120302
  17. SPIRIVA [Concomitant]
     Dates: start: 20110501, end: 20120227
  18. NAPROXEN (ALEVE) [Concomitant]
     Dates: start: 20050101, end: 20120227
  19. PREDNISONE [Concomitant]
     Indication: EMPHYSEMA
     Dates: start: 20110101
  20. ALBUTEROL [Concomitant]
     Indication: EMPHYSEMA
     Dosage: DOSE PER INTAKE: 2 PUFFS
     Dates: start: 20120302
  21. VITAMIN E [Concomitant]
     Indication: VITAMIN SUPPLEMENTATION
     Dates: start: 19850101

REACTIONS (1)
  - PNEUMONIA [None]
